FAERS Safety Report 8582342 (Version 3)
Quarter: 2012Q4

REPORT INFORMATION
  Report Type: 
  Country: DE (occurrence: DE)
  Receive Date: 20120528
  Receipt Date: 20121206
  Transmission Date: 20130627
  Serious: Yes (Life-Threatening)
  Sender: FDA-Public Use
  Company Number: DE-ROCHE-1072264

PATIENT
  Age: 80 Year
  Sex: Female

DRUGS (1)
  1. ACTILYSE [Suspect]
     Indication: ISCHAEMIC STROKE
     Route: 040
     Dates: start: 20111114

REACTIONS (4)
  - Angioedema [Unknown]
  - Dyspnoea [Unknown]
  - Tongue injury [Unknown]
  - Tooth injury [Unknown]
